FAERS Safety Report 16185705 (Version 1)
Quarter: 2019Q2

REPORT INFORMATION
  Report Type: Spontaneous
  Country: BR (occurrence: BR)
  Receive Date: 20190411
  Receipt Date: 20190411
  Transmission Date: 20190711
  Serious: Yes (Other)
  Sender: FDA-Public Use
  Company Number: BR-SA-2019SA051493

PATIENT
  Sex: Female
  Weight: 60 kg

DRUGS (2)
  1. TOUJEO [Suspect]
     Active Substance: INSULIN GLARGINE
     Indication: TYPE 1 DIABETES MELLITUS
     Dosage: 36 IU, QD
     Route: 065
     Dates: start: 20190201
  2. HUMALOG [Concomitant]
     Active Substance: INSULIN LISPRO
     Indication: TYPE 1 DIABETES MELLITUS
     Dosage: UNK UNK, TID
     Route: 058
     Dates: start: 2017

REACTIONS (13)
  - Syncope [Unknown]
  - Visual impairment [Recovering/Resolving]
  - Musculoskeletal stiffness [Unknown]
  - Sensory disturbance [Unknown]
  - Hyperglycaemia [Recovering/Resolving]
  - Weight increased [Recovering/Resolving]
  - Feeling of despair [Recovering/Resolving]
  - Depression [Unknown]
  - Plantar fasciitis [Unknown]
  - Hypoaesthesia [Unknown]
  - Hypoglycaemia [Recovering/Resolving]
  - Unevaluable event [Unknown]
  - Discomfort [Recovering/Resolving]
